FAERS Safety Report 20000817 (Version 1)
Quarter: 2021Q4

REPORT INFORMATION
  Report Type: Spontaneous
  Country: JP (occurrence: JP)
  Receive Date: 20211027
  Receipt Date: 20211027
  Transmission Date: 20220303
  Serious: Yes (Hospitalization)
  Sender: FDA-Public Use
  Company Number: JP-ELI_LILLY_AND_COMPANY-JP202110009225AA

PATIENT

DRUGS (2)
  1. CYRAMZA [Suspect]
     Active Substance: RAMUCIRUMAB
     Indication: Squamous cell carcinoma of lung
     Dosage: UNK, CYCLICAL
     Route: 041
  2. DOCETAXEL [Concomitant]
     Active Substance: DOCETAXEL
     Indication: Squamous cell carcinoma of lung
     Dosage: UNK, CYCLICAL
     Route: 041

REACTIONS (2)
  - Oedema [Unknown]
  - Pleural effusion [Unknown]
